FAERS Safety Report 7386484-8 (Version None)
Quarter: 2011Q1

REPORT INFORMATION
  Report Type: 
  Country: None (occurrence: None)
  Receive Date: 20110323
  Receipt Date: 20110308
  Transmission Date: 20110831
  Serious: Yes (Hospitalization, Other)
  Sender: FDA-Public Use
  Company Number: 20110202

PATIENT
  Age: 48 Year
  Sex: Female

DRUGS (2)
  1. METHYLENE BLUE INJECTION, USP (0301-10) (METHYLENE BLUE) 1% [Suspect]
     Indication: PARATHYROID DISORDER
     Dosage: 5 MG/KG IN 500 ML 5% DEXTROSE, INTRAVENOUS DRIP
     Route: 041
  2. 5% DEXTROSE, 500 ML [Concomitant]

REACTIONS (6)
  - VOMITING [None]
  - CHROMATURIA [None]
  - NERVOUS SYSTEM DISORDER [None]
  - OFF LABEL USE [None]
  - STATUS EPILEPTICUS [None]
  - GRAND MAL CONVULSION [None]
